FAERS Safety Report 16762368 (Version 1)
Quarter: 2019Q3

REPORT INFORMATION
  Report Type: Spontaneous
  Country: CA (occurrence: CA)
  Receive Date: 20190831
  Receipt Date: 20190831
  Transmission Date: 20191005
  Serious: Yes (Other)
  Sender: FDA-Public Use
  Company Number: CA-TEVA-2019-CA-1100339

PATIENT
  Age: 13 Year
  Sex: Male
  Weight: 73 kg

DRUGS (6)
  1. BLEOMYCIN SULPHATE FOR INJECTION USP [Concomitant]
     Active Substance: BLEOMYCIN SULFATE
  2. ETOPOSIDE. [Concomitant]
     Active Substance: ETOPOSIDE
  3. CYCLOPHOSPHAMIDE. [Concomitant]
     Active Substance: CYCLOPHOSPHAMIDE
  4. DOXORUBICIN HYDROCHLORIDE INJECTION [Concomitant]
     Active Substance: DOXORUBICIN HYDROCHLORIDE
  5. PREDNISONE. [Concomitant]
     Active Substance: PREDNISONE
  6. VINCRISTINE SULFATE. [Suspect]
     Active Substance: VINCRISTINE SULFATE
     Indication: HODGKIN^S DISEASE
     Route: 042

REACTIONS (4)
  - Back pain [Recovered/Resolved]
  - Neuropathy peripheral [Recovered/Resolved]
  - Oropharyngeal pain [Recovered/Resolved]
  - Pain in jaw [Recovered/Resolved]
